FAERS Safety Report 24568947 (Version 3)
Quarter: 2024Q4

REPORT INFORMATION
  Report Type: Spontaneous
  Country: IT (occurrence: IT)
  Receive Date: 20241031
  Receipt Date: 20241108
  Transmission Date: 20250115
  Serious: Yes (Hospitalization, Other)
  Sender: ROCHE
  Company Number: IT-ROCHE-10000120462

PATIENT
  Age: 35 Year
  Sex: Male

DRUGS (3)
  1. OCRELIZUMAB [Suspect]
     Active Substance: OCRELIZUMAB
     Indication: Multiple sclerosis
     Route: 042
     Dates: start: 20230808
  2. CEFTRIAXONE [Concomitant]
     Active Substance: CEFTRIAXONE
  3. PONESIMOD [Concomitant]
     Active Substance: PONESIMOD

REACTIONS (2)
  - COVID-19 pneumonia [Recovered/Resolved]
  - Neutropenia [Recovered/Resolved]

NARRATIVE: CASE EVENT DATE: 20230929
